FAERS Safety Report 9010109 (Version 2)
Quarter: 2013Q1

REPORT INFORMATION
  Report Type: Spontaneous
  Country: US (occurrence: US)
  Receive Date: 20130110
  Receipt Date: 20130125
  Transmission Date: 20140127
  Serious: No
  Sender: FDA-Public Use
  Company Number: US-009507513-1301USA002987

PATIENT
  Age: 18 Year
  Sex: Female

DRUGS (4)
  1. DULERA [Suspect]
     Indication: PULMONARY GRANULOMA
     Dosage: 2 DF, BID
     Route: 048
  2. DULERA [Suspect]
     Indication: DYSPNOEA
  3. DULERA [Suspect]
     Indication: ASTHMA
  4. ALBUTEROL [Concomitant]

REACTIONS (4)
  - Oropharyngeal pain [Not Recovered/Not Resolved]
  - Haemoptysis [Not Recovered/Not Resolved]
  - Drug dose omission [Unknown]
  - Product quality issue [Unknown]
